FAERS Safety Report 8624365-X (Version None)
Quarter: 2012Q3

REPORT INFORMATION
  Report Type: 
  Country: None (occurrence: None)
  Receive Date: 20120827
  Receipt Date: 20120816
  Transmission Date: 20120928
  Serious: Yes (Other)
  Sender: FDA-Public Use
  Company Number: US-ASTRAZENECA-2012SE41437

PATIENT
  Age: 55 Year
  Sex: Male

DRUGS (1)
  1. NEXIUM [Suspect]
     Route: 048

REACTIONS (9)
  - JOINT INJURY [None]
  - CARTILAGE INJURY [None]
  - MALAISE [None]
  - FALL [None]
  - ACCIDENT [None]
  - LIGAMENT RUPTURE [None]
  - DYSPNOEA [None]
  - BONE FRAGMENTATION [None]
  - PAIN [None]
